FAERS Safety Report 13079795 (Version 1)
Quarter: 2017Q1

REPORT INFORMATION
  Report Type: Spontaneous
  Country: US (occurrence: US)
  Receive Date: 20170103
  Receipt Date: 20170103
  Transmission Date: 20170428
  Serious: No
  Sender: FDA-Public Use
  Company Number: US-BIOGEN-2016BI00336036

PATIENT
  Sex: Female

DRUGS (1)
  1. TECFIDERA [Suspect]
     Active Substance: DIMETHYL FUMARATE
     Indication: MULTIPLE SCLEROSIS
     Route: 065
     Dates: start: 20140408

REACTIONS (4)
  - Multiple sclerosis [Not Recovered/Not Resolved]
  - Road traffic accident [Recovered/Resolved]
  - Contusion [Unknown]
  - Gastrooesophageal reflux disease [Unknown]
